FAERS Safety Report 7347380 (Version 5)
Quarter: 2013Q4

REPORT INFORMATION
  Report Type: Spontaneous
  Country: US (occurrence: US)
  Receive Date: 20100407
  Receipt Date: 20131213
  Transmission Date: 20140711
  Serious: Yes (Hospitalization, Other)
  Sender: FDA-Public Use
  Company Number: US-BAYER-201018395NA

PATIENT
  Age: 15 Year
  Sex: Female
  Weight: 100 kg

DRUGS (14)
  1. YAZ [Suspect]
     Indication: PREMENSTRUAL SYNDROME
     Dosage: UNK UNK, QD
     Route: 048
     Dates: start: 20070716, end: 20080227
  2. ANTIBIOTICS [Concomitant]
     Dosage: UNK
  3. IBUPROFEN [Concomitant]
  4. MORPHINE [Concomitant]
  5. LEVSIN [Concomitant]
  6. METFORMIN [Concomitant]
  7. BACTRIM DS [Concomitant]
  8. TUSSI-ORGANIDIN [CODEINE PHOSPHATE,IODINATED GLYCEROL] [Concomitant]
  9. ADVIL [Concomitant]
  10. ACETAMINOPHEN [Concomitant]
  11. LECITHIN [Concomitant]
  12. ALLEGRA-D [Concomitant]
  13. Z-PAK [Concomitant]
  14. VITAMINS [Concomitant]
     Dosage: UNK
     Dates: start: 20081014

REACTIONS (8)
  - Biliary dyskinesia [Recovering/Resolving]
  - Gallbladder injury [None]
  - Cholecystitis chronic [None]
  - Cholecystitis acute [None]
  - Abdominal pain upper [Recovering/Resolving]
  - Constipation [Recovering/Resolving]
  - Nausea [Recovering/Resolving]
  - Hepatobiliary scan abnormal [Recovering/Resolving]
